FAERS Safety Report 8761901 (Version 3)
Quarter: 2013Q1

REPORT INFORMATION
  Report Type: Spontaneous
  Country: US (occurrence: US)
  Receive Date: 20120829
  Receipt Date: 20130314
  Transmission Date: 20140127
  Serious: Yes (Hospitalization, Congenital Anomaly, Other)
  Sender: FDA-Public Use
  Company Number: US-PFIZER INC-2012211123

PATIENT
  Sex: Female

DRUGS (4)
  1. ZOLOFT [Suspect]
     Dosage: 50 MG, UNK
     Route: 064
     Dates: start: 20010910
  2. HUMULIN N [Concomitant]
     Dosage: 100 UNITS/ML
     Route: 064
     Dates: start: 20010907
  3. METHYLDOPA [Concomitant]
     Dosage: 250 MG, UNK
     Route: 064
     Dates: start: 20011120
  4. HUMULIN R [Concomitant]
     Dosage: 100 UNITS/ML
     Route: 064
     Dates: start: 20010907

REACTIONS (13)
  - Maternal exposure during pregnancy [Unknown]
  - Truncus arteriosus persistent [Not Recovered/Not Resolved]
  - Talipes [Not Recovered/Not Resolved]
  - Congenital anomaly [Not Recovered/Not Resolved]
  - Ventricular septal defect [Recovered/Resolved]
  - Right ventricle outflow tract obstruction [Unknown]
  - Congenital heart valve disorder [Unknown]
  - Pulmonary artery stenosis congenital [Unknown]
  - Atrial septal defect [Unknown]
  - Right aortic arch [Unknown]
  - Laevocardia [Unknown]
  - Respiratory failure [Unknown]
  - Cardiomegaly [Unknown]
